FAERS Safety Report 22252544 (Version 3)
Quarter: 2023Q2

REPORT INFORMATION
  Report Type: Spontaneous
  Country: JP (occurrence: JP)
  Receive Date: 20230426
  Receipt Date: 20230522
  Transmission Date: 20230721
  Serious: Yes (Hospitalization, Other)
  Sender: FDA-Public Use
  Company Number: JP-ONO-2023JP009577

PATIENT
  Age: 72 Year
  Sex: Male
  Weight: 50.1 kg

DRUGS (2)
  1. OPDIVO [Suspect]
     Active Substance: NIVOLUMAB
     Indication: Oesophageal carcinoma
     Dosage: 240 MG/DAY
     Route: 041
     Dates: start: 20200604, end: 20201001
  2. OPDIVO [Suspect]
     Active Substance: NIVOLUMAB
     Dosage: 240 MG/DAY
     Route: 041
     Dates: start: 20210812, end: 20210909

REACTIONS (3)
  - Immune-mediated lung disease [Not Recovered/Not Resolved]
  - COVID-19 pneumonia [Recovered/Resolved]
  - Off label use [Unknown]

NARRATIVE: CASE EVENT DATE: 20201008
